FAERS Safety Report 4566322-9 (Version None)
Quarter: 2005Q1

REPORT INFORMATION
  Report Type: 
  Country: None (occurrence: None)
  Receive Date: 20050126
  Receipt Date: 20050126
  Transmission Date: 20050727
  Serious: Yes (Life-Threatening, Disabling)
  Sender: FDA-Public Use
  Company Number: None

PATIENT
  Age: 27 Year
  Sex: Male
  Weight: 104.3273 kg

DRUGS (1)
  1. OXYCONTIN [Suspect]
     Indication: DEPRESSION
     Dosage: 10MG   2 TIMES A DAY
     Dates: start: 20020101, end: 20041201

REACTIONS (2)
  - CONFUSIONAL STATE [None]
  - IMPAIRED WORK ABILITY [None]
